FAERS Safety Report 12972638 (Version 2)
Quarter: 2016Q4

REPORT INFORMATION
  Report Type: Spontaneous
  Country: US (occurrence: US)
  Receive Date: 20161124
  Receipt Date: 20161220
  Transmission Date: 20170207
  Serious: Yes (Other)
  Sender: FDA-Public Use
  Company Number: US-AUROBINDO-AUR-APL-2016-14118

PATIENT
  Age: 84 Year
  Sex: Male
  Weight: 71.2 kg

DRUGS (1)
  1. CIPROFLOXACIN TABLETS USP 500 MG [Suspect]
     Active Substance: CIPROFLOXACIN
     Indication: URINARY TRACT INFECTION
     Dosage: 500 MG, UNK
     Dates: start: 20161104

REACTIONS (4)
  - Blood pressure fluctuation [Unknown]
  - Headache [Unknown]
  - Hypertension [Unknown]
  - Nightmare [Unknown]

NARRATIVE: CASE EVENT DATE: 20161104
